FAERS Safety Report 9247402 (Version 2)
Quarter: 2013Q2

REPORT INFORMATION
  Report Type: Spontaneous
  Country: DE (occurrence: DE)
  Receive Date: 20130423
  Receipt Date: 20130504
  Transmission Date: 20140414
  Serious: Yes (Other)
  Sender: FDA-Public Use
  Company Number: DE-009507513-1304DEU005083

PATIENT
  Age: 65 Year
  Sex: Male
  Weight: 75 kg

DRUGS (2)
  1. COSOPT [Suspect]
     Indication: NORMAL TENSION GLAUCOMA
     Dosage: 1 GTT, BID
     Route: 047
     Dates: start: 201204, end: 20130130
  2. TRAVATAN [Concomitant]
     Indication: INTRAOCULAR PRESSURE DECREASED
     Dosage: 1 GTT, QD
     Route: 047
     Dates: start: 201207

REACTIONS (4)
  - Peyronie^s disease [Not Recovered/Not Resolved]
  - Penis disorder [Unknown]
  - Fibrosis [Unknown]
  - Penile curvature [Unknown]
